FAERS Safety Report 5285700-6 (Version None)
Quarter: 2007Q1

REPORT INFORMATION
  Report Type: 
  Country: None (occurrence: None)
  Receive Date: 20070126
  Receipt Date: 20061215
  Transmission Date: 20070707
  Serious: Yes (Hospitalization)
  Sender: FDA-Public Use
  Company Number: 2006CT001182

PATIENT
  Sex: Female

DRUGS (4)
  1. VENTAVIS [Suspect]
     Indication: PULMONARY HYPERTENSION
     Dosage: 2.5 UG;6XD;INH
     Route: 055
     Dates: start: 20060801
  2. VENTAVIS [Suspect]
     Dosage: SEE IMAGE
     Dates: end: 20061201
  3. VENTAVIS [Suspect]
     Dosage: SEE IMAGE
     Dates: start: 20061201
  4. PREDNISONE [Concomitant]

REACTIONS (2)
  - DYSPNOEA [None]
  - HEADACHE [None]
